FAERS Safety Report 21401839 (Version 1)
Quarter: 2022Q4

REPORT INFORMATION
  Report Type: Spontaneous
  Country: DE (occurrence: DE)
  Receive Date: 20221003
  Receipt Date: 20221003
  Transmission Date: 20230113
  Serious: Yes (Hospitalization)
  Sender: FDA-Public Use
  Company Number: DE-NOVARTISPH-NVSC2022DE217836

PATIENT
  Age: 48 Year
  Sex: Female
  Weight: 80 kg

DRUGS (11)
  1. TRAMADOL [Suspect]
     Active Substance: TRAMADOL
     Indication: Product used for unknown indication
     Dosage: UNK
     Route: 065
  2. IBUPROFEN [Suspect]
     Active Substance: IBUPROFEN
     Indication: Product used for unknown indication
     Dosage: 600 MG, (1-0-1-1)
     Route: 065
  3. DARIFENACIN [Concomitant]
     Active Substance: DARIFENACIN
     Indication: Product used for unknown indication
     Dosage: 7.5 MG, (BEDARF)
     Route: 065
  4. CHOLECALCIFEROL [Concomitant]
     Active Substance: CHOLECALCIFEROL
     Indication: Product used for unknown indication
     Dosage: 20000 IE, 2MAL PRO WOCHE
     Route: 065
  5. RAMIPRIL [Concomitant]
     Active Substance: RAMIPRIL
     Indication: Product used for unknown indication
     Dosage: 5 MG, QD (1-0-0-0)
     Route: 065
  6. METAMIZOLE [Concomitant]
     Active Substance: METAMIZOLE
     Indication: Product used for unknown indication
     Dosage: 500 MG, (100 TROPFEN PRO TAG, TROPFEN)
     Route: 065
  7. CYANOCOBALAMIN [Concomitant]
     Active Substance: CYANOCOBALAMIN
     Indication: Product used for unknown indication
     Dosage: UNK (0-0-1-0)
     Route: 065
  8. DIETARY SUPPLEMENT\HERBALS\MILK THISTLE [Concomitant]
     Active Substance: DIETARY SUPPLEMENT\HERBALS\MILK THISTLE
     Indication: Product used for unknown indication
     Dosage: 167 MG, (0-0-1-0)
     Route: 065
  9. DIENOGEST\ETHINYL ESTRADIOL [Concomitant]
     Active Substance: DIENOGEST\ETHINYL ESTRADIOL
     Indication: Product used for unknown indication
     Dosage: UNK (0-0-0-1)
     Route: 065
  10. MAGNESIUM [Concomitant]
     Active Substance: MAGNESIUM
     Indication: Product used for unknown indication
     Dosage: 400 MG, QD (0-1-0-0)
     Route: 065
  11. ZINC ASPARTATE [Concomitant]
     Active Substance: ZINC ASPARTATE
     Indication: Product used for unknown indication
     Dosage: UNK (0-1-0-0) (50)
     Route: 065

REACTIONS (10)
  - Tachypnoea [Unknown]
  - Acute respiratory failure [Unknown]
  - Systemic infection [Unknown]
  - Cyanosis [Unknown]
  - Dyspnoea [Unknown]
  - Cerebral haemorrhage [Unknown]
  - Renal impairment [Unknown]
  - Bradypnoea [Unknown]
  - General physical health deterioration [Unknown]
  - Hypoxia [Unknown]
